FAERS Safety Report 13784170 (Version 1)
Quarter: 2017Q3

REPORT INFORMATION
  Report Type: Spontaneous
  Country: US (occurrence: US)
  Receive Date: 20170724
  Receipt Date: 20170724
  Transmission Date: 20171127
  Serious: No
  Sender: FDA-Public Use
  Company Number: US-B.I. PHARMACEUTICALS,INC./RIDGEFIELD-2017-BI-040479

PATIENT
  Age: 81 Year
  Sex: Female

DRUGS (8)
  1. CRESTOR [Concomitant]
     Active Substance: ROSUVASTATIN CALCIUM
     Indication: BLOOD CHOLESTEROL INCREASED
     Dosage: 2 PILLS ONCE A DAY;  FORM STRENGTH: 5MG; FORMULATION: TABLET
     Route: 048
  2. XALATAN [Concomitant]
     Active Substance: LATANOPROST
     Indication: GLAUCOMA
     Dosage: BED TIME LEFT EYE.;  FORM STRENGTH: 2.5MG
     Route: 065
  3. BETATOPIC [Concomitant]
     Indication: GLAUCOMA
     Dosage: LEFT EYE AM;  FORM STRENGTH: 2.5MG
     Route: 065
     Dates: end: 20170714
  4. STIOLTO RESPIMAT [Suspect]
     Active Substance: OLODATEROL HYDROCHLORIDE\TIOTROPIUM BROMIDE MONOHYDRATE
     Indication: CHRONIC OBSTRUCTIVE PULMONARY DISEASE
     Dosage: 2 PUFFS A DAY;  FORM STRENGTH: 2.5 MCG; FORMULATION: INHALATION SPRAY? ADMINISTRATION CORRECT? YES
     Route: 055
     Dates: start: 201706
  5. METFORMIN [Concomitant]
     Active Substance: METFORMIN HYDROCHLORIDE
     Indication: DIABETES MELLITUS
     Dosage: TWICE A DAY;  FORM STRENGTH: 1000MG; FORMULATION: TABLET
     Route: 048
  6. LISINOPRIL HTZ [Concomitant]
     Active Substance: HYDROCHLOROTHIAZIDE\LISINOPRIL
     Indication: HYPERTENSION
     Dosage: DAILY;  FORM STRENGTH: 20-12.5MG; FORMULATION: TABLET
     Route: 048
  7. GLIPIZIDE. [Concomitant]
     Active Substance: GLIPIZIDE
     Indication: DIABETES MELLITUS
     Dosage: TWICE A DAY;  FORM STRENGTH: 4MG; FORMULATION: TABLET
     Route: 048
  8. VITAMIN D 3 [Concomitant]
     Indication: VITAMIN D DECREASED
     Dosage: DAIL;  FORM STRENGTH: 2000 MG; FORMULATION: TABLET
     Route: 048

REACTIONS (4)
  - Ocular hyperaemia [Not Recovered/Not Resolved]
  - Eye pruritus [Not Recovered/Not Resolved]
  - Vision blurred [Not Recovered/Not Resolved]
  - Eye infection [Not Recovered/Not Resolved]

NARRATIVE: CASE EVENT DATE: 20170707
